FAERS Safety Report 5933234-5 (Version None)
Quarter: 2008Q4

REPORT INFORMATION
  Report Type: 
  Country: None (occurrence: None)
  Receive Date: 20081028
  Receipt Date: 20081016
  Transmission Date: 20090506
  Serious: Yes (Other)
  Sender: FDA-Public Use
  Company Number: PR-PFIZER INC-2008070556

PATIENT
  Sex: Female
  Weight: 56.7 kg

DRUGS (4)
  1. GEODON (IM) [Suspect]
     Route: 030
     Dates: start: 20080827, end: 20080827
  2. ATIVAN [Suspect]
     Route: 030
     Dates: start: 20080827, end: 20080827
  3. LITHIUM [Concomitant]
     Route: 048
  4. CLONAZEPAM [Concomitant]
     Route: 048

REACTIONS (1)
  - HYPOTENSION [None]
